FAERS Safety Report 8309608 (Version 2)
Quarter: 2012Q4

REPORT INFORMATION
  Report Type: 
  Country: IL (occurrence: IL)
  Receive Date: 20111223
  Receipt Date: 20121214
  Transmission Date: 20130627
  Serious: Yes (Death, Hospitalization, Other)
  Sender: FDA-Public Use
  Company Number: IL-RANBAXY-2011RR-51191

PATIENT
  Age: 54 Year
  Sex: Female

DRUGS (1)
  1. ETODOLAC [Suspect]
     Indication: BACK PAIN
     Dosage: 800 mg/day
     Route: 065

REACTIONS (1)
  - Colitis microscopic [Recovered/Resolved]
